FAERS Safety Report 9143142 (Version 1)
Quarter: 2013Q1

REPORT INFORMATION
  Report Type: Spontaneous
  Country: US (occurrence: US)
  Receive Date: 20130306
  Receipt Date: 20130306
  Transmission Date: 20140127
  Serious: No
  Sender: FDA-Public Use
  Company Number: US-ENDO PHARMACEUTICALS INC.-OPCR20120130

PATIENT
  Age: 32 Year
  Sex: Male

DRUGS (3)
  1. OPANA ER 30MG [Suspect]
     Indication: PAIN
     Route: 048
     Dates: start: 201203, end: 201204
  2. OPANA ER 20MG [Suspect]
     Indication: PAIN
     Route: 048
  3. OPANA ER [Concomitant]
     Indication: PAIN
     Route: 048
     Dates: end: 201203

REACTIONS (2)
  - Tinnitus [Not Recovered/Not Resolved]
  - Urinary retention [Recovered/Resolved]
